FAERS Safety Report 8158383-5 (Version None)
Quarter: 2012Q1

REPORT INFORMATION
  Report Type: 
  Country: None (occurrence: None)
  Receive Date: 20120223
  Receipt Date: 20120213
  Transmission Date: 20120608
  Serious: Yes (Other)
  Sender: FDA-Public Use
  Company Number: SE-BAYER-2012-013900

PATIENT
  Age: 41 Week
  Sex: Male
  Weight: 4 kg

DRUGS (1)
  1. MIRENA [Suspect]
     Dosage: 20 ?G/D, CONT
     Route: 064

REACTIONS (2)
  - UMBILICAL CORD ABNORMALITY [None]
  - MECONIUM IN AMNIOTIC FLUID [None]
